FAERS Safety Report 6740817-1 (Version None)
Quarter: 2010Q2

REPORT INFORMATION
  Report Type: 
  Country: None (occurrence: None)
  Receive Date: 20100525
  Receipt Date: 20100525
  Transmission Date: 20101027
  Serious: Yes (Other)
  Sender: FDA-Public Use
  Company Number: None

PATIENT
  Age: 46 Year
  Sex: Male
  Weight: 74.8435 kg

DRUGS (1)
  1. VALTREX [Suspect]
     Indication: HERPES VIRUS INFECTION
     Dates: start: 20091201, end: 20100115

REACTIONS (2)
  - HERPES VIRUS INFECTION [None]
  - PRODUCT SUBSTITUTION ISSUE [None]
